FAERS Safety Report 6039773-3 (Version None)
Quarter: 2009Q1

REPORT INFORMATION
  Report Type: 
  Country: None (occurrence: None)
  Receive Date: 20090116
  Receipt Date: 20090105
  Transmission Date: 20090719
  Serious: Yes (Other)
  Sender: FDA-Public Use
  Company Number: US-ASTRAZENECA-2008AC03478

PATIENT
  Age: 29 Year
  Sex: Female

DRUGS (8)
  1. QUETIAPINE FUMARATE [Suspect]
     Route: 048
  2. ABILIFY [Suspect]
     Route: 065
  3. VISTARIL [Suspect]
     Route: 065
  4. FLEXERIL [Suspect]
  5. LAMICTAL [Suspect]
  6. COGENTIN [Suspect]
     Route: 065
  7. LEXAPRO [Concomitant]
  8. ALBUTEROL [Concomitant]
     Indication: ASTHMA

REACTIONS (2)
  - DIPLOPIA [None]
  - STRABISMUS [None]
